FAERS Safety Report 6607594-6 (Version None)
Quarter: 2010Q1

REPORT INFORMATION
  Report Type: 
  Country: None (occurrence: None)
  Receive Date: 20100203
  Receipt Date: 20100127
  Transmission Date: 20100710
  Serious: Yes (Hospitalization)
  Sender: FDA-Public Use
  Company Number: 2010021912

PATIENT
  Weight: 18.6 kg

DRUGS (5)
  1. HUMATE-P [Suspect]
     Indication: EPISTAXIS
     Dosage: 1648 IU INTRAVENOUS 9NOT OHERWISE SPECIFIED)
     Dates: start: 20090804, end: 20090813
  2. HUMATE-P [Suspect]
     Indication: VON WILLEBRAND'S DISEASE
     Dosage: 1648 IU INTRAVENOUS 9NOT OHERWISE SPECIFIED)
     Dates: start: 20090804, end: 20090813
  3. HUMATE-P [Suspect]
  4. FERROUS SULFATE TAB [Concomitant]
  5. FOLIC ACID [Concomitant]

REACTIONS (8)
  - ANAEMIA [None]
  - CONDITION AGGRAVATED [None]
  - EOSINOPHIL PERCENTAGE INCREASED [None]
  - HUMAN HERPES VIRUS 6 SEROLOGY POSITIVE [None]
  - PROTEINURIA [None]
  - SERUM SICKNESS [None]
  - SOMNOLENCE [None]
  - TYPE III IMMUNE COMPLEX MEDIATED REACTION [None]
